FAERS Safety Report 8560256-0 (Version None)
Quarter: 2012Q3

REPORT INFORMATION
  Report Type: 
  Country: None (occurrence: None)
  Receive Date: 20120802
  Receipt Date: 20120727
  Transmission Date: 20120928
  Serious: Yes (Other)
  Sender: FDA-Public Use
  Company Number: BR-ABBOTT-12P-020-0961617-00

PATIENT
  Sex: Male
  Weight: 64 kg

DRUGS (3)
  1. HUMIRA [Suspect]
     Route: 058
  2. HUMIRA [Suspect]
     Indication: CROHN'S DISEASE
     Dosage: 4 INJECTIONS AT THE SAME DAY
     Route: 058
     Dates: start: 20120716
  3. HUMIRA [Suspect]
     Dosage: 2 INJECTIONS
     Route: 058

REACTIONS (4)
  - FISTULA DISCHARGE [None]
  - PAIN [None]
  - FISTULA [None]
  - POOR PERSONAL HYGIENE [None]
